FAERS Safety Report 18757645 (Version 1)
Quarter: 2021Q1

REPORT INFORMATION
  Report Type: Spontaneous
  Country: FR (occurrence: FR)
  Receive Date: 20210119
  Receipt Date: 20210119
  Transmission Date: 20210419
  Serious: Yes (Hospitalization)
  Sender: FDA-Public Use
  Company Number: FR-TEVA-2021-FR-1869358

PATIENT
  Age: 24 Year
  Sex: Male

DRUGS (2)
  1. ZOPICLONE [Suspect]
     Active Substance: ZOPICLONE
     Dosage: UNKNOWN
     Route: 048
     Dates: start: 20201024
  2. TRAMADOL BASE [Suspect]
     Active Substance: TRAMADOL
     Dosage: UNKNOWN
     Route: 048

REACTIONS (1)
  - Coma [Recovering/Resolving]

NARRATIVE: CASE EVENT DATE: 20201024
